FAERS Safety Report 5728953-X (Version None)
Quarter: 2008Q2

REPORT INFORMATION
  Report Type: 
  Country: None (occurrence: None)
  Receive Date: 20080430
  Receipt Date: 20080224
  Transmission Date: 20081010
  Serious: No
  Sender: FDA-Public Use
  Company Number: 2008PV034353

PATIENT
  Age: 28 Year
  Sex: Female
  Weight: 90.7194 kg

DRUGS (2)
  1. SYMLIN [Suspect]
     Indication: TYPE 1 DIABETES MELLITUS
     Dosage: 30 MCG;TID;SC
     Route: 058
     Dates: start: 20080214
  2. HUMALOG [Concomitant]

REACTIONS (4)
  - BLOOD GLUCOSE INCREASED [None]
  - NAUSEA [None]
  - URINE KETONE BODY PRESENT [None]
  - WRONG DRUG ADMINISTERED [None]
